FAERS Safety Report 8041400-0 (Version None)
Quarter: 2012Q1

REPORT INFORMATION
  Report Type: 
  Country: None (occurrence: None)
  Receive Date: 20120109
  Receipt Date: 20111226
  Transmission Date: 20120608
  Serious: Yes (Disabling, Other)
  Sender: FDA-Public Use
  Company Number: 2011MA017998

PATIENT
  Sex: Female
  Weight: 94.3482 kg

DRUGS (37)
  1. CARVEDILOL [Concomitant]
  2. HYDROCHLOROTHIAZIDE [Concomitant]
  3. NOVOLIN 70/30 [Concomitant]
  4. VYTORIN [Concomitant]
  5. MOBIC [Concomitant]
  6. CALCIUM CARBONATE [Concomitant]
  7. ROZEREM [Concomitant]
  8. INDERAL [Concomitant]
  9. TENEX [Concomitant]
  10. POTASSIUM CHLORIDE [Concomitant]
  11. PRILOSEC [Concomitant]
  12. LOTREL [Concomitant]
  13. TEKTURNA [Concomitant]
  14. AMARYL [Concomitant]
  15. AMOXIL [Concomitant]
  16. NITROGLYCERIN [Concomitant]
  17. PROZAC [Concomitant]
  18. IRON [Concomitant]
  19. TRIMETHOPRIM + SULFAMETHOXAZOLE [Concomitant]
  20. ADENOSINE [Concomitant]
  21. PLAVIX [Concomitant]
  22. RESTORIL [Concomitant]
  23. ULTRAM [Concomitant]
  24. CELEBREX [Concomitant]
  25. ASPIRIN [Concomitant]
  26. CLARITIN [Concomitant]
  27. ERYTHROPOETIN [Concomitant]
  28. DIGOXIN [Suspect]
     Dosage: 0.125 MG;QD;PO
     Route: 048
     Dates: start: 20021209, end: 20091111
  29. FLUCONAZOLE [Concomitant]
  30. BENICAR [Concomitant]
  31. PROPRANOLOL [Concomitant]
  32. PROTONIX [Concomitant]
  33. ACTOS [Concomitant]
  34. MULTI-VITAMINS [Concomitant]
  35. METFORMIN HCL [Concomitant]
  36. HYZAAR [Concomitant]
  37. AVALIDE [Concomitant]

REACTIONS (39)
  - HYPERLIPIDAEMIA [None]
  - DYSURIA [None]
  - ATRIAL FIBRILLATION [None]
  - BLOOD GLUCOSE FLUCTUATION [None]
  - GOITRE [None]
  - DIZZINESS [None]
  - JOINT SWELLING [None]
  - ARTHRALGIA [None]
  - SPONDYLOARTHROPATHY [None]
  - HYPOTENSION [None]
  - BODY HEIGHT DECREASED [None]
  - DIABETES MELLITUS [None]
  - NECK PAIN [None]
  - FATIGUE [None]
  - ASTHENIA [None]
  - ANAEMIA [None]
  - PARAESTHESIA [None]
  - NASAL CONGESTION [None]
  - FIBROMYALGIA [None]
  - PRESYNCOPE [None]
  - URINARY TRACT INFECTION [None]
  - MITRAL VALVE INCOMPETENCE [None]
  - HYPERTENSION [None]
  - METABOLIC SYNDROME [None]
  - SINUSITIS [None]
  - PAIN IN EXTREMITY [None]
  - DYSPNOEA [None]
  - BREAST CANCER [None]
  - DEPRESSION [None]
  - OSTEOPENIA [None]
  - PALPITATIONS [None]
  - URINE ODOUR ABNORMAL [None]
  - CARDIAC VALVE DISEASE [None]
  - BLOOD PRESSURE INCREASED [None]
  - BRADYCARDIA [None]
  - BLOOD ERYTHROPOIETIN DECREASED [None]
  - OSTEOARTHRITIS [None]
  - CAROTID ARTERY DISEASE [None]
  - INSOMNIA [None]
